FAERS Safety Report 5890209-2 (Version None)
Quarter: 2008Q3

REPORT INFORMATION
  Report Type: 
  Country: None (occurrence: None)
  Receive Date: 20080919
  Receipt Date: 20080908
  Transmission Date: 20090109
  Serious: Yes (Congenital Anomaly)
  Sender: FDA-Public Use
  Company Number: FR-PFIZER INC-2008076175

PATIENT
  Sex: Female

DRUGS (1)
  1. LYRICA [Suspect]
     Indication: NEURALGIA

REACTIONS (3)
  - CEREBRAL DYSGENESIS [None]
  - DRUG EXPOSURE DURING PREGNANCY [None]
  - EYE DISORDER [None]
